FAERS Safety Report 6277695-3 (Version None)
Quarter: 2009Q3

REPORT INFORMATION
  Report Type: 
  Country: None (occurrence: None)
  Receive Date: 20090722
  Receipt Date: 20090713
  Transmission Date: 20100115
  Serious: Yes (Death, Hospitalization, Congenital Anomaly)
  Sender: FDA-Public Use
  Company Number: A0748063A

PATIENT
  Sex: Male

DRUGS (3)
  1. PAXIL [Suspect]
     Indication: DEPRESSION
     Dosage: 10MG PER DAY
     Dates: start: 20060101, end: 20060101
  2. PAROXETINE HCL [Suspect]
     Indication: DRUG USE FOR UNKNOWN INDICATION
     Dosage: 10MG UNKNOWN
     Dates: start: 20060926
  3. VITAMIN AND MINERAL PRENATAL SUPPLEMENT W/ FOLIC ACID CAP [Concomitant]

REACTIONS (46)
  - AORTIC VALVE INCOMPETENCE [None]
  - ASCITES [None]
  - ATELECTASIS [None]
  - ATRIAL SEPTAL DEFECT [None]
  - BLOOD CULTURE POSITIVE [None]
  - BRADYCARDIA NEONATAL [None]
  - CANDIDA SEPSIS [None]
  - CARDIAC FAILURE CONGESTIVE [None]
  - CULTURE URINE POSITIVE [None]
  - CYANOSIS NEONATAL [None]
  - DOUBLE OUTLET RIGHT VENTRICLE [None]
  - DRUG EXPOSURE DURING PREGNANCY [None]
  - FOOD INTOLERANCE [None]
  - GASTROOESOPHAGEAL REFLUX DISEASE [None]
  - HAEMODYNAMIC INSTABILITY [None]
  - HAEMORRHAGE [None]
  - HYPERHIDROSIS [None]
  - HYPOALBUMINAEMIA [None]
  - HYPOCALCAEMIA [None]
  - HYPOKALAEMIA [None]
  - INFANTILE APNOEIC ATTACK [None]
  - JAUNDICE NEONATAL [None]
  - KLEBSIELLA INFECTION [None]
  - LEFT ATRIAL DILATATION [None]
  - LIVER FUNCTION TEST ABNORMAL [None]
  - MATERNAL DRUGS AFFECTING FOETUS [None]
  - NASAL CONGESTION [None]
  - NASAL FLARING [None]
  - NO THERAPEUTIC RESPONSE [None]
  - OEDEMA [None]
  - PALLOR [None]
  - PLEURAL EFFUSION [None]
  - PNEUMOTHORAX [None]
  - POSTOPERATIVE ADHESION [None]
  - PULMONARY ARTERY DILATATION [None]
  - PULMONARY HYPERTENSION [None]
  - PULMONARY VALVE INCOMPETENCE [None]
  - PYREXIA [None]
  - RESPIRATORY FAILURE [None]
  - SEPSIS NEONATAL [None]
  - SHOCK [None]
  - TRICUSPID VALVE INCOMPETENCE [None]
  - URINE OUTPUT DECREASED [None]
  - USE OF ACCESSORY RESPIRATORY MUSCLES [None]
  - VENTRICULAR HYPERTROPHY [None]
  - VENTRICULAR SEPTAL DEFECT [None]
